FAERS Safety Report 15708665 (Version 1)
Quarter: 2018Q4

REPORT INFORMATION
  Report Type: Spontaneous
  Country: US (occurrence: US)
  Receive Date: 20181211
  Receipt Date: 20181211
  Transmission Date: 20190205
  Serious: Yes (Hospitalization)
  Sender: FDA-Public Use
  Company Number: US-ALK-ABELLO A/S-2018AA004270

PATIENT

DRUGS (13)
  1. STAE BULK 555 (FELIS DOMESTICUS) [Suspect]
     Active Substance: FELIS CATUS HAIR
     Indication: IMMUNE TOLERANCE INDUCTION
     Dosage: FULL MAINTENANCE DOSE
  2. STAE BULK 555 (FELIS DOMESTICUS) [Suspect]
     Active Substance: FELIS CATUS HAIR
     Dosage: FULL MAINTENANCE DOSE, 2-WEEK INTERVAL
  3. TAE BULK UNSPECIFIED [Suspect]
     Active Substance: ALLERGENIC EXTRACTS
     Dosage: FULL MAINTENANCE DOSE, 2-WEEK INTERVAL
  4. TAE BULK 553 [Suspect]
     Active Substance: ALLERGENIC EXTRACTS
     Dosage: 20 PERCENT MAINTENANCE DOSE
  5. PROPRANOLOL [Concomitant]
     Active Substance: PROPRANOLOL HYDROCHLORIDE
     Indication: MIGRAINE PROPHYLAXIS
  6. TAE BULK 510 [Suspect]
     Active Substance: DERMATOPHAGOIDES FARINAE\DERMATOPHAGOIDES PTERONYSSINUS
     Dosage: FULL MAINTENANCE DOSE, 2-WEEK INTERVAL
  7. STAE BULK 555 (FELIS DOMESTICUS) [Suspect]
     Active Substance: FELIS CATUS HAIR
     Dosage: 20 PERCENT MAINTENANCE DOSE
  8. TAE BULK UNSPECIFIED [Suspect]
     Active Substance: ALLERGENIC EXTRACTS
     Dosage: 20 PERCENT MAINTENACE DOSE
  9. TAE BULK 510 [Suspect]
     Active Substance: DERMATOPHAGOIDES FARINAE\DERMATOPHAGOIDES PTERONYSSINUS
     Indication: IMMUNE TOLERANCE INDUCTION
     Dosage: FULL MAINTENANCE DOSE
  10. TAE BULK 553 [Suspect]
     Active Substance: ALLERGENIC EXTRACTS
     Indication: IMMUNE TOLERANCE INDUCTION
     Dosage: FULL MAINTENANCE DOSE
  11. TAE BULK 510 [Suspect]
     Active Substance: DERMATOPHAGOIDES FARINAE\DERMATOPHAGOIDES PTERONYSSINUS
     Dosage: 20 PERCENT MAINTENANCE DOSE
  12. TAE BULK 553 [Suspect]
     Active Substance: ALLERGENIC EXTRACTS
     Dosage: FULL MAINTENANCE DOSE, 2-WEEK INTERVAL
  13. TAE BULK UNSPECIFIED [Suspect]
     Active Substance: ALLERGENIC EXTRACTS
     Indication: IMMUNE TOLERANCE INDUCTION
     Dosage: FULL MAINTENANCE DOSE

REACTIONS (1)
  - Anaphylactic reaction [Recovered/Resolved]
